FAERS Safety Report 17000481 (Version 1)
Quarter: 2019Q4

REPORT INFORMATION
  Report Type: Spontaneous
  Country: IT (occurrence: IT)
  Receive Date: 20191106
  Receipt Date: 20191106
  Transmission Date: 20200122
  Serious: Yes (Other)
  Sender: FDA-Public Use
  Company Number: IT-METUCHEN-STN-2019-0306

PATIENT
  Age: 59 Year
  Sex: Male

DRUGS (1)
  1. SPEDRA (AVANAFIL) TABLETS [Suspect]
     Active Substance: AVANAFIL
     Indication: ORGANIC ERECTILE DYSFUNCTION
     Dosage: 200MG
     Route: 048
     Dates: start: 20190502

REACTIONS (2)
  - Asthenia [Not Recovered/Not Resolved]
  - Transaminases increased [Not Recovered/Not Resolved]

NARRATIVE: CASE EVENT DATE: 20190624
